FAERS Safety Report 9249544 (Version 1)
Quarter: 2013Q2

REPORT INFORMATION
  Report Type: Spontaneous
  Country: US (occurrence: US)
  Receive Date: 20130423
  Receipt Date: 20130423
  Transmission Date: 20140414
  Serious: Yes (Other)
  Sender: FDA-Public Use
  Company Number: CHPA2013US006698

PATIENT
  Age: 80 Year
  Sex: Male

DRUGS (4)
  1. TRANSDERM SCOP [Suspect]
     Indication: BALANCE DISORDER
     Dosage: 1 DF, Q72H
     Route: 062
     Dates: start: 1981, end: 1985
  2. TRANSDERM SCOP [Suspect]
     Indication: MOTION SICKNESS
     Dosage: 1 DF, Q72H
     Route: 062
     Dates: start: 20130325, end: 20130404
  3. TRANSDERM SCOP [Suspect]
     Indication: NAUSEA
  4. MAO INHIBITORS [Concomitant]

REACTIONS (9)
  - Cerebrovascular accident [Unknown]
  - Angina pectoris [Unknown]
  - Head injury [Unknown]
  - Diplopia [Unknown]
  - Eye disorder [Unknown]
  - Altered visual depth perception [Unknown]
  - Off label use [Unknown]
  - Therapeutic response unexpected [Unknown]
  - Dry mouth [Recovered/Resolved]
